FAERS Safety Report 7215156-5 (Version None)
Quarter: 2011Q1

REPORT INFORMATION
  Report Type: 
  Country: None (occurrence: None)
  Receive Date: 20110107
  Receipt Date: 20101005
  Transmission Date: 20110831
  Serious: No
  Sender: FDA-Public Use
  Company Number: A0882097A

PATIENT
  Age: 51 Year
  Sex: Male
  Weight: 79.1 kg

DRUGS (4)
  1. LOVAZA [Concomitant]
     Dosage: 1CAP WEEKLY
     Route: 048
     Dates: start: 20090312, end: 20100716
  2. LOVAZA [Suspect]
     Dosage: 2CAP PER DAY
     Route: 048
     Dates: start: 20060630, end: 20080901
  3. ANTIHYPERTENSIVES [Concomitant]
  4. UNSPECIFIED MEDICATION [Concomitant]

REACTIONS (1)
  - SKIN ODOUR ABNORMAL [None]
